FAERS Safety Report 5535191-2 (Version None)
Quarter: 2007Q4

REPORT INFORMATION
  Report Type: 
  Country: None (occurrence: None)
  Receive Date: 20071206
  Receipt Date: 20071130
  Transmission Date: 20080405
  Serious: Yes (Other)
  Sender: FDA-Public Use
  Company Number: PHEH2007US15374

PATIENT

DRUGS (2)
  1. CLOZAPINE [Suspect]
     Dosage: 200 MG, UNK
  2. CLOZAPINE [Suspect]
     Dosage: 300 MG, UNK

REACTIONS (1)
  - PSYCHOTIC DISORDER [None]
